FAERS Safety Report 8175260-4 (Version None)
Quarter: 2012Q1

REPORT INFORMATION
  Report Type: 
  Country: None (occurrence: None)
  Receive Date: 20120229
  Receipt Date: 20120220
  Transmission Date: 20120608
  Serious: Yes (Hospitalization)
  Sender: FDA-Public Use
  Company Number: JP-PFIZER INC-2011268795

PATIENT
  Age: 6 Year
  Sex: Male
  Weight: 20 kg

DRUGS (7)
  1. SOLU-MEDROL [Suspect]
     Indication: CARDIAC OPERATION
     Dosage: 500 MG, 1X/DAY
     Route: 042
     Dates: start: 20111017, end: 20111017
  2. ULTIVA [Concomitant]
     Dosage: UNK
     Dates: start: 20111017, end: 20111017
  3. FENTANYL [Concomitant]
     Dosage: UNK
     Dates: start: 20111017, end: 20111017
  4. ROCURONIUM BROMIDE [Concomitant]
     Dosage: UNK
     Dates: start: 20111017, end: 20111017
  5. SEVOFLURANE [Concomitant]
     Dosage: UNK
     Dates: start: 20111017, end: 20111017
  6. TRANSAMINE CAP [Suspect]
     Indication: CARDIAC OPERATION
     Dosage: 1.9 G, 1X/DAY
     Route: 042
     Dates: start: 20111017, end: 20111017
  7. CEFAZOLIN [Suspect]
     Indication: CARDIAC OPERATION
     Dosage: 0.4 G, 1X/DAY
     Route: 042
     Dates: start: 20111017, end: 20111017

REACTIONS (1)
  - ANAPHYLACTIC SHOCK [None]
